FAERS Safety Report 6091339-5 (Version None)
Quarter: 2009Q1

REPORT INFORMATION
  Report Type: 
  Country: None (occurrence: None)
  Receive Date: 20090220
  Receipt Date: 20090220
  Transmission Date: 20090719
  Serious: Yes (Hospitalization)
  Sender: FDA-Public Use
  Company Number: None

PATIENT
  Age: 39 Year
  Sex: Female
  Weight: 56.6996 kg

DRUGS (2)
  1. CEFTIN [Suspect]
     Indication: SINUSITIS
     Dates: start: 20081211, end: 20081218
  2. AVELOX [Suspect]
     Dosage: 7 DAYS; FOLLOWED W/10 DAY
     Dates: start: 20090119, end: 20090120

REACTIONS (3)
  - ABDOMINAL PAIN UPPER [None]
  - CLOSTRIDIAL INFECTION [None]
  - DIARRHOEA HAEMORRHAGIC [None]
